FAERS Safety Report 7405189-8 (Version None)
Quarter: 2011Q2

REPORT INFORMATION
  Report Type: 
  Country: None (occurrence: None)
  Receive Date: 20110411
  Receipt Date: 20110406
  Transmission Date: 20111010
  Serious: Yes (Other)
  Sender: FDA-Public Use
  Company Number: FR-BRISTOL-MYERS SQUIBB COMPANY-15656580

PATIENT
  Age: 63 Year
  Sex: Male

DRUGS (14)
  1. EUPANTOL [Interacting]
  2. LYRICA [Concomitant]
  3. ZANTAC [Concomitant]
     Indication: PREMEDICATION
  4. TAXOL [Suspect]
     Indication: BRONCHIAL CARCINOMA
     Dosage: 3RD INFUSION ON 06APR2011
  5. ALPRAZOLAM [Concomitant]
  6. CYMBALTA [Concomitant]
  7. ZOPHREN [Concomitant]
  8. SOLU-MEDROL [Concomitant]
     Indication: PREMEDICATION
  9. FUNGIZONE [Concomitant]
  10. SOLUPRED [Concomitant]
  11. MORPHINE SULFATE [Interacting]
     Indication: BRONCHIAL CARCINOMA
     Dosage: DOSE INCREASED
  12. POLARAMINE [Concomitant]
     Indication: PREMEDICATION
  13. VANCOMYCIN [Concomitant]
  14. DAFALGAN [Concomitant]

REACTIONS (4)
  - RESPIRATORY DEPRESSION [None]
  - OVERDOSE [None]
  - CONFUSIONAL STATE [None]
  - DRUG INTERACTION [None]
